FAERS Safety Report 5131435-X (Version None)
Quarter: 2006Q4

REPORT INFORMATION
  Report Type: 
  Country: None (occurrence: None)
  Receive Date: 20061020
  Receipt Date: 20050623
  Transmission Date: 20070319
  Serious: Yes (Hospitalization)
  Sender: FDA-Public Use
  Company Number: JP-BRISTOL-MYERS SQUIBB COMPANY-13016217

PATIENT
  Age: 43 Year
  Sex: Male

DRUGS (9)
  1. ZERIT [Suspect]
     Indication: HIV INFECTION
     Route: 048
     Dates: start: 20040412, end: 20050403
  2. STOCRIN CAPS [Suspect]
     Indication: HIV INFECTION
     Route: 048
     Dates: start: 20040412
  3. VIREAD [Suspect]
     Indication: HIV INFECTION
     Route: 048
     Dates: start: 20050404, end: 20060217
  4. EPIVIR [Suspect]
     Indication: HIV INFECTION
     Route: 048
     Dates: start: 20040412, end: 20060217
  5. DALACIN [Concomitant]
     Route: 048
     Dates: start: 20040409, end: 20051025
  6. LEUCOVORIN CALCIUM [Concomitant]
     Dosage: 09-APR-2004 TO 28-DEC2004, THEN 29-DEC-2004 TO 24-JAN-2005
     Route: 048
     Dates: start: 20040409, end: 20050124
  7. FOLIAMIN [Concomitant]
     Route: 048
     Dates: start: 20050125, end: 20051025
  8. PYRIMETHAMINE + SULFADOXINE [Concomitant]
     Indication: TOXOPLASMOSIS
     Dosage: 09-APR-2004 TO 03-NOV-2004, THE 04-NOV-2004
     Route: 048
     Dates: start: 20041104, end: 20051025
  9. EPZICOM [Concomitant]
     Route: 048
     Dates: start: 20060218

REACTIONS (6)
  - ANAEMIA MACROCYTIC [None]
  - HAEMATURIA [None]
  - LACTIC ACIDOSIS [None]
  - NORMOCHROMIC NORMOCYTIC ANAEMIA [None]
  - PROTEINURIA [None]
  - RENAL DISORDER [None]
